FAERS Safety Report 8341267 (Version 2)
Quarter: 2012Q4

REPORT INFORMATION
  Report Type: 
  Country: US (occurrence: US)
  Receive Date: 20120118
  Receipt Date: 20120928
  Transmission Date: 20130627
  Serious: Yes (Other)
  Sender: FDA-Public Use
  Company Number: US-PFIZER INC-2012012948

PATIENT
  Age: 48 Year
  Sex: Female
  Weight: 62.59 kg

DRUGS (5)
  1. CHANTIX [Suspect]
     Indication: SMOKING CESSATION THERAPY
     Dosage: 0.5 mg, 1x/day
     Route: 048
     Dates: start: 20111123, end: 2011
  2. CHANTIX [Suspect]
     Dosage: UNK
     Route: 048
     Dates: start: 2011, end: 201112
  3. CHANTIX [Suspect]
     Dosage: 1 mg, 2x/day
     Route: 048
     Dates: start: 20120913, end: 20120923
  4. DILTIAZEM [Concomitant]
     Indication: HYPERTENSION
     Dosage: 260 mg, 1x/day
  5. BENICAR HCT [Concomitant]
     Indication: HYPERTENSION
     Dosage: 40/12.5 mg, 1x/day

REACTIONS (5)
  - Surgery [Unknown]
  - Drug ineffective [Unknown]
  - Depressed mood [Unknown]
  - Feeling of relaxation [Unknown]
  - Therapeutic response unexpected [Unknown]
